FAERS Safety Report 9766319 (Version 1)
Quarter: 2013Q4

REPORT INFORMATION
  Report Type: Spontaneous
  Country: US (occurrence: US)
  Receive Date: 20131217
  Receipt Date: 20131217
  Transmission Date: 20140711
  Serious: No
  Sender: FDA-Public Use
  Company Number: US-GLAXOSMITHKLINE-A1025589A

PATIENT
  Sex: Male
  Weight: 69.1 kg

DRUGS (8)
  1. VOTRIENT [Suspect]
     Indication: PRODUCT USED FOR UNKNOWN INDICATION
     Dosage: 800MG PER DAY
     Route: 048
  2. METFORMIN [Concomitant]
  3. LOVASTATIN [Concomitant]
  4. LISINOPRIL [Concomitant]
  5. NOVOLOG [Concomitant]
  6. TRAMADOL HCL [Concomitant]
  7. HYDROCODONE/ APAP [Concomitant]
  8. NAPROXEN [Concomitant]

REACTIONS (4)
  - Fatigue [Unknown]
  - Decreased appetite [Unknown]
  - Neck pain [Unknown]
  - Musculoskeletal pain [Unknown]
